FAERS Safety Report 9417552 (Version 1)
Quarter: 2013Q3

REPORT INFORMATION
  Report Type: Spontaneous
  Country: US (occurrence: US)
  Receive Date: 20130724
  Receipt Date: 20130724
  Transmission Date: 20140515
  Serious: Yes (Other)
  Sender: FDA-Public Use
  Company Number: US-PFIZER INC-2013179848

PATIENT
  Age: 45 Year
  Sex: Female
  Weight: 92.52 kg

DRUGS (11)
  1. ATORVASTATIN CALCIUM [Suspect]
     Dosage: 40 MG, 1X/DAY (QHS)
  2. NORVASC [Suspect]
     Indication: LOCAL SWELLING
     Dosage: 10 MG, 1X/DAY (1 PO QD)
     Route: 048
     Dates: end: 20111117
  3. OMEGA 3 ORAL [Concomitant]
     Indication: HYPERLIPIDAEMIA
     Dosage: UNK
     Route: 048
  4. PRAVACHOL [Concomitant]
     Indication: HYPERLIPIDAEMIA
     Dosage: 20 MG, 1X/DAY (TAKE 1 TAB BY MOUTH DAILY AT BEDTIME)
     Route: 048
     Dates: start: 20111117, end: 20111129
  5. HYDRODIURIL [Concomitant]
     Indication: BLOOD PRESSURE
     Dosage: 25 MG, 1X/DAY (TAKE 1 TAB BY MOUTH DAILY)
     Route: 048
     Dates: start: 20111117, end: 20120514
  6. VASOTEC [Concomitant]
     Indication: HYPERTENSION
     Dosage: 20 MG, 1X/DAY (TAKE 1 TAB BY MOUTH DAILY)
     Route: 048
     Dates: start: 20111117, end: 20120214
  7. PRILOSEC [Concomitant]
     Indication: GASTROOESOPHAGEAL REFLUX DISEASE
     Dosage: 20 MG, 1X/DAY (TAKE 1 CAP BY MOUTH DAILY)
     Route: 048
     Dates: start: 20111117, end: 20120813
  8. GLIPIZIDE [Concomitant]
     Dosage: 5 MG, UNK
  9. SIMVASTATIN [Concomitant]
     Dosage: 40 MG, UNK
  10. ENALAPRIL [Concomitant]
     Dosage: 20 MG, UNK
  11. HCTZ [Concomitant]
     Dosage: 25 MG, UNK

REACTIONS (6)
  - Drug ineffective [Unknown]
  - Blood pressure inadequately controlled [Unknown]
  - Heart rate increased [Unknown]
  - Arthralgia [Recovered/Resolved]
  - Joint swelling [Recovered/Resolved]
  - Pain [Unknown]
